FAERS Safety Report 5968456-0 (Version None)
Quarter: 2008Q4

REPORT INFORMATION
  Report Type: 
  Country: None (occurrence: None)
  Receive Date: 20081121
  Receipt Date: 20081121
  Transmission Date: 20090506
  Serious: Yes (Other)
  Sender: FDA-Public Use
  Company Number: None

PATIENT
  Age: 50 Year
  Sex: Male
  Weight: 80 kg

DRUGS (1)
  1. EDRONAX 4 MG PHARMACIA [Suspect]
     Indication: DEPRESSION
     Dosage: 1 OR 2 X 4MG DAILY PO
     Route: 048
     Dates: start: 20080910, end: 20081115

REACTIONS (1)
  - DIABETES MELLITUS INADEQUATE CONTROL [None]
